FAERS Safety Report 9738657 (Version 2)
Quarter: 2014Q2

REPORT INFORMATION
  Report Type: Spontaneous
  Country: US (occurrence: US)
  Receive Date: 20131209
  Receipt Date: 20140415
  Transmission Date: 20141212
  Serious: No
  Sender: FDA-Public Use
  Company Number: US-BIOGENIDEC-2013BI115627

PATIENT
  Sex: Female
  Weight: 63 kg

DRUGS (32)
  1. TYSABRI [Suspect]
     Indication: MULTIPLE SCLEROSIS
     Route: 042
     Dates: start: 20120604
  2. AMPYRA [Concomitant]
     Indication: GAIT DISTURBANCE
     Route: 048
     Dates: start: 201208, end: 201301
  3. AMPYRA [Concomitant]
     Indication: GAIT DISTURBANCE
     Route: 048
     Dates: start: 201208, end: 201301
  4. AMPYRA [Concomitant]
     Indication: GAIT DISTURBANCE
     Route: 048
     Dates: start: 20130830
  5. AMPYRA [Concomitant]
     Indication: GAIT DISTURBANCE
     Route: 048
     Dates: start: 20130830
  6. NEURONTIN [Concomitant]
     Dates: start: 201201
  7. TENORMIN [Concomitant]
     Dates: start: 1975
  8. HCTZ [Concomitant]
     Dates: start: 1975
  9. KLOR-CON [Concomitant]
     Dates: start: 1975
  10. BENADRYL [Concomitant]
  11. VESICARE [Concomitant]
  12. HYDROCHLOROTHAZIDE [Concomitant]
     Dates: start: 1975
  13. ACTHAR [Concomitant]
  14. CYMBALTA [Concomitant]
  15. BACLOFEN [Concomitant]
  16. FLONASE [Concomitant]
  17. ATENOLOL [Concomitant]
  18. XANAX [Concomitant]
  19. FOSAMAX [Concomitant]
  20. ZYRTEC [Concomitant]
  21. VITAMIN A [Concomitant]
  22. WELLBUTRIN [Concomitant]
  23. VITAMIN B COMPLEX [Concomitant]
  24. NAPROXEN [Concomitant]
  25. URECHOLINE [Concomitant]
  26. LIPOFLAVONOID [Concomitant]
  27. CALCIUM [Concomitant]
  28. VISINE [Concomitant]
  29. VITAMIN D [Concomitant]
  30. FISH OIL [Concomitant]
  31. VITAMIN E [Concomitant]
  32. VITAMIN C [Concomitant]

REACTIONS (22)
  - Muscle spasticity [Unknown]
  - Xanthopsia [Unknown]
  - Urticaria [Unknown]
  - Hypersomnia [Unknown]
  - Aphasia [Unknown]
  - Injury [Unknown]
  - Back disorder [Unknown]
  - Cognitive disorder [Unknown]
  - Feeling abnormal [Not Recovered/Not Resolved]
  - Venous injury [Not Recovered/Not Resolved]
  - Vein disorder [Not Recovered/Not Resolved]
  - Aura [Unknown]
  - Fall [Not Recovered/Not Resolved]
  - Paraesthesia [Unknown]
  - Coordination abnormal [Not Recovered/Not Resolved]
  - Balance disorder [Not Recovered/Not Resolved]
  - Hypoaesthesia [Unknown]
  - Peroneal nerve palsy [Unknown]
  - Drug dose omission [Recovered/Resolved]
  - Gait disturbance [Not Recovered/Not Resolved]
  - Fatigue [Unknown]
  - Multiple sclerosis relapse [Unknown]
